FAERS Safety Report 6564266-4 (Version None)
Quarter: 2010Q1

REPORT INFORMATION
  Report Type: 
  Country: None (occurrence: None)
  Receive Date: 20100201
  Receipt Date: 20100121
  Transmission Date: 20100710
  Serious: No
  Sender: FDA-Public Use
  Company Number: US-BAYER-201010182NA

PATIENT
  Age: 26 Year
  Sex: Female
  Weight: 50 kg

DRUGS (1)
  1. MIRENA [Suspect]
     Indication: CONTRACEPTION
     Route: 048
     Dates: start: 20080401, end: 20100112

REACTIONS (11)
  - AMENORRHOEA [None]
  - ANXIETY [None]
  - BACK PAIN [None]
  - BREAST PAIN [None]
  - CRYING [None]
  - INSOMNIA [None]
  - MOTION SICKNESS [None]
  - MUSCULOSKELETAL PAIN [None]
  - MYALGIA [None]
  - NAUSEA [None]
  - VAGINAL HAEMORRHAGE [None]
